FAERS Safety Report 9234369 (Version 1)
Quarter: 2013Q2

REPORT INFORMATION
  Report Type: Other
  Country: GB (occurrence: GB)
  Receive Date: 20130416
  Receipt Date: 20130416
  Transmission Date: 20140414
  Serious: Yes (Other)
  Sender: FDA-Public Use
  Company Number: DK-NICOBRDEVP-2013-06410

PATIENT
  Sex: Female

DRUGS (5)
  1. FOLIC ACID (WATSON LABORATORIES) [Suspect]
     Indication: PRODUCT USED FOR UNKNOWN INDICATION
     Dosage: 400 MCG, UNKNOWN
     Route: 064
     Dates: start: 20110801
  2. ACETAMINOPHEN-CODEINE PHOSPHATE (UNKNOWN) (ACETAMINOPHE, CODEINE PHOSPHATE) UNK, UNKUNK [Suspect]
     Indication: PRODUCT USED FOR UNKNOWN INDICATION
     Dosage: 30/500
     Route: 064
     Dates: start: 20111114, end: 20111130
  3. M-M-RVAXPRO [Suspect]
     Indication: IMMUNISATION
     Dosage: UNK
     Route: 064
     Dates: start: 20110707, end: 20110707
  4. FLUOXETINE HYDROCHLORIDE (UNKNOWN) [Suspect]
     Indication: PRODUCT USED FOR UNKNOWN INDICATION
     Dosage: 20 MG, UNK
     Route: 064
     Dates: start: 20111114, end: 20111128
  5. PHENOXYMETHYLPENICILLIN [Suspect]
     Indication: PRODUCT USED FOR UNKNOWN INDICATION
     Dosage: 500 MG, UNKNOWN
     Route: 064
     Dates: start: 20120102, end: 20120109

REACTIONS (2)
  - Gastroenteritis viral [Unknown]
  - Foetal exposure during pregnancy [Unknown]
